FAERS Safety Report 4871624-2 (Version None)
Quarter: 2006Q1

REPORT INFORMATION
  Report Type: 
  Country: None (occurrence: None)
  Receive Date: 20060104
  Receipt Date: 20051227
  Transmission Date: 20060701
  Serious: Yes (Death, Hospitalization)
  Sender: FDA-Public Use
  Company Number: US-AVENTIS-200520921US

PATIENT
  Sex: Female

DRUGS (35)
  1. LOVENOX [Suspect]
     Indication: ATRIAL FIBRILLATION
     Route: 058
     Dates: start: 20051018
  2. LOVENOX [Suspect]
     Dosage: DOSE: UNKNOWN
     Dates: start: 20051021
  3. LOVENOX [Suspect]
     Route: 058
     Dates: start: 20051023
  4. COUMADIN [Concomitant]
     Dosage: DOSE: 7.5 AND 2.5
  5. COUMADIN [Concomitant]
     Dates: start: 20051019
  6. ASPIRIN [Concomitant]
     Dosage: DOSE: UNKNOWN
  7. NORVASC [Concomitant]
     Dosage: DOSE: UNKNOWN
  8. DIGOXIN [Concomitant]
     Dosage: DOSE: UNKNOWN
  9. POTASSIUM CHLORIDE [Concomitant]
     Dosage: DOSE: UNKNOWN
  10. NACL [Concomitant]
     Dosage: DOSE: UNKNOWN
  11. METOPROLOL [Concomitant]
     Dosage: DOSE: UNKNOWN
  12. TYLENOL [Concomitant]
     Dosage: DOSE: UNKNOWN
  13. VITAMIN B-12 [Concomitant]
     Dosage: DOSE: UNKNOWN
  14. ARICEPT [Concomitant]
     Dosage: DOSE: UNKNOWN
  15. THIAMINE [Concomitant]
     Dosage: DOSE: UNKNOWN
  16. MEMANTINE HCL [Concomitant]
     Dosage: DOSE: UNKNOWN
  17. MVI                                     /USA/ [Concomitant]
     Dosage: DOSE: UNKNOWN
  18. UNKNOWN DRUG [Concomitant]
     Dosage: DOSE: UNKNOWN
  19. XANAX [Concomitant]
     Dosage: DOSE: UNKNOWN
  20. AMBIEN [Concomitant]
     Dosage: DOSE: UNKNOWN
  21. MOM [Concomitant]
     Dosage: DOSE: UNKNOWN
  22. DOCUSATE [Concomitant]
     Dosage: DOSE: UNKNOWN
  23. DEXTROSE 5% [Concomitant]
     Dosage: DOSE: UNKNOWN
  24. FRESH FROZEN PLASMA [Concomitant]
     Dosage: DOSE: UNKNOWN
  25. LEVOFLOXACIN [Concomitant]
     Dosage: DOSE: UNKNOWN
  26. NEO-SYNEPHRINE [Concomitant]
     Dosage: DOSE: UNKNOWN
  27. VITAMIN K [Concomitant]
     Dosage: DOSE: UNKNOWN
  28. MORPHINE [Concomitant]
     Dosage: DOSE: UNKNOWN
  29. ISOVUE-128 [Concomitant]
     Dosage: DOSE: UNKNOWN
  30. MAGNESIUM [Concomitant]
     Dosage: DOSE: UNKNOWN
  31. MIDAZOLAM [Concomitant]
     Dosage: DOSE: UNKNOWN
  32. METOCLOPRAMIDE [Concomitant]
     Dosage: DOSE: UNKNOWN
  33. ZOSYN [Concomitant]
     Dosage: DOSE: UNKNOWN
  34. LORAZEPAM [Concomitant]
     Dosage: DOSE: UNKNOWN
  35. PANTOPRAZOLE [Concomitant]
     Dosage: DOSE: UNKNOWN

REACTIONS (15)
  - ACUTE RESPIRATORY FAILURE [None]
  - ANXIETY [None]
  - BACK PAIN [None]
  - BLOOD PRESSURE DECREASED [None]
  - CONTUSION [None]
  - FALL [None]
  - GASTROINTESTINAL DISORDER [None]
  - HAEMOGLOBIN [None]
  - HYPOTHERMIA [None]
  - MENTAL STATUS CHANGES [None]
  - METABOLIC ACIDOSIS [None]
  - RESPIRATORY ACIDOSIS [None]
  - RETROPERITONEAL HAEMATOMA [None]
  - SEPSIS [None]
  - URINE OUTPUT DECREASED [None]
